FAERS Safety Report 19406524 (Version 2)
Quarter: 2022Q3

REPORT INFORMATION
  Report Type: Spontaneous
  Country: US (occurrence: US)
  Receive Date: 20210612
  Receipt Date: 20220829
  Transmission Date: 20221026
  Serious: Yes (Other)
  Sender: FDA-Public Use
  Company Number: US-SA-2021SA195698

PATIENT
  Age: 68 Year
  Sex: Male

DRUGS (1)
  1. RANITIDINE HYDROCHLORIDE [Suspect]
     Active Substance: RANITIDINE HYDROCHLORIDE
     Indication: Dyspepsia
     Dosage: 150 MG, QD
     Dates: start: 201503, end: 201812

REACTIONS (2)
  - Neoplasm malignant [Unknown]
  - Prostate cancer stage II [Unknown]

NARRATIVE: CASE EVENT DATE: 20191204
